FAERS Safety Report 7403103-2 (Version None)
Quarter: 2011Q2

REPORT INFORMATION
  Report Type: 
  Country: None (occurrence: None)
  Receive Date: 20110408
  Receipt Date: 20110321
  Transmission Date: 20111010
  Serious: No
  Sender: FDA-Public Use
  Company Number: US-NOVEN-11US002043

PATIENT

DRUGS (1)
  1. FENTANYL [Suspect]
     Indication: PRODUCT USED FOR UNKNOWN INDICATION
     Dosage: 100 UG, Q48H
     Route: 062
     Dates: start: 20060101

REACTIONS (9)
  - APPLICATION SITE RASH [None]
  - APPLICATION SITE VESICLES [None]
  - APPLICATION SITE ULCER [None]
  - FEELING HOT [None]
  - APPLICATION SITE ERYTHEMA [None]
  - DRUG WITHDRAWAL SYNDROME [None]
  - COLD SWEAT [None]
  - RESTLESSNESS [None]
  - INADEQUATE ANALGESIA [None]
